FAERS Safety Report 5374595-8 (Version None)
Quarter: 2007Q2

REPORT INFORMATION
  Report Type: 
  Country: None (occurrence: None)
  Receive Date: 20070627
  Receipt Date: 20070627
  Transmission Date: 20071010
  Serious: Yes (Life-Threatening)
  Sender: FDA-Public Use
  Company Number: None

PATIENT
  Age: 86 Year
  Sex: Male
  Weight: 51.2565 kg

DRUGS (6)
  1. VALPROATE SODIUM [Suspect]
     Indication: AFFECTIVE DISORDER
     Dosage: 250MG EVERY 8 HOURS PO
     Route: 048
     Dates: start: 20060527
  2. VALPROATE SODIUM [Suspect]
     Indication: AGITATION
     Dosage: 250MG EVERY 8 HOURS PO
     Route: 048
     Dates: start: 20060527
  3. VALPROATE SODIUM [Suspect]
     Indication: DEMENTIA
     Dosage: 250MG EVERY 8 HOURS PO
     Route: 048
     Dates: start: 20060527
  4. VALPROATE SODIUM [Suspect]
     Indication: AFFECTIVE DISORDER
     Dosage: 250MG EVERY 8 HOURS PO
     Route: 048
     Dates: start: 20070508
  5. VALPROATE SODIUM [Suspect]
     Indication: AGITATION
     Dosage: 250MG EVERY 8 HOURS PO
     Route: 048
     Dates: start: 20070508
  6. VALPROATE SODIUM [Suspect]
     Indication: DEMENTIA
     Dosage: 250MG EVERY 8 HOURS PO
     Route: 048
     Dates: start: 20070508

REACTIONS (2)
  - HEPATIC ENZYME INCREASED [None]
  - THROMBOCYTOPENIA [None]
